FAERS Safety Report 10289372 (Version 1)
Quarter: 2014Q3

REPORT INFORMATION
  Report Type: Report from Study
  Country: GB (occurrence: GB)
  Receive Date: 20140710
  Receipt Date: 20140710
  Transmission Date: 20150326
  Serious: Yes (Death)
  Sender: FDA-Public Use
  Company Number: GB-AMGEN-GBRCT2014051500

PATIENT
  Age: 66 Year
  Sex: Male
  Weight: 83 kg

DRUGS (1)
  1. ETANERCEPT [Suspect]
     Active Substance: ETANERCEPT
     Indication: RHEUMATOID ARTHRITIS
     Dosage: 25 MG, 2 TIMES/WK
     Route: 065
     Dates: start: 20040115, end: 20060807

REACTIONS (6)
  - Myelofibrosis [Fatal]
  - Acute myeloid leukaemia [Fatal]
  - Renal failure chronic [Fatal]
  - Pneumonia [Fatal]
  - Tumour lysis syndrome [Fatal]
  - Rheumatoid arthritis [Fatal]
